FAERS Safety Report 4608440-2 (Version None)
Quarter: 2005Q1

REPORT INFORMATION
  Report Type: 
  Country: None (occurrence: None)
  Receive Date: 20050310
  Receipt Date: 20050303
  Transmission Date: 20050727
  Serious: Yes (Death)
  Sender: FDA-Public Use
  Company Number: 200510210BVD

PATIENT
  Age: 61 Year
  Sex: Female
  Weight: 67 kg

DRUGS (8)
  1. AVELOX [Suspect]
     Indication: CHRONIC OBSTRUCTIVE AIRWAYS DISEASE EXACERBATED
     Dosage: 400 MG, ORAL
     Route: 048
     Dates: start: 20050214, end: 20050217
  2. AVELOX [Suspect]
     Indication: PYREXIA
     Dosage: 400 MG, ORAL
     Route: 048
     Dates: start: 20050214, end: 20050217
  3. LOPERAMID [Concomitant]
  4. LISINOPRIL [Concomitant]
  5. BRONCHORETARD [Concomitant]
  6. HCT [Concomitant]
  7. SYMBICORT TURBUHALER ^DRACO^ [Concomitant]
  8. NEBILET [Concomitant]

REACTIONS (1)
  - SUDDEN DEATH [None]
